FAERS Safety Report 24130846 (Version 2)
Quarter: 2024Q3

REPORT INFORMATION
  Report Type: Spontaneous
  Country: CN (occurrence: CN)
  Receive Date: 20240724
  Receipt Date: 20240726
  Transmission Date: 20241016
  Serious: Yes (Life-Threatening, Hospitalization)
  Sender: STRIDES
  Company Number: CN-STRIDES ARCOLAB LIMITED-2024SP009107

PATIENT
  Age: 8 Year
  Sex: Female

DRUGS (13)
  1. ETOPOSIDE [Suspect]
     Active Substance: ETOPOSIDE
     Indication: Epstein-Barr virus infection
     Dosage: 150 MILLIGRAM/SQ. METER, QD
     Route: 065
  2. ETOPOSIDE [Suspect]
     Active Substance: ETOPOSIDE
     Indication: Haemophagocytic lymphohistiocytosis
  3. ACYCLOVIR [Suspect]
     Active Substance: ACYCLOVIR
     Indication: Infectious mononucleosis
     Dosage: UNK
     Route: 065
  4. DEXAMETHASONE [Suspect]
     Active Substance: DEXAMETHASONE
     Indication: Epstein-Barr virus infection
     Dosage: 10 MILLIGRAM/SQ. METER, QD
     Route: 065
  5. DEXAMETHASONE [Suspect]
     Active Substance: DEXAMETHASONE
     Indication: Haemophagocytic lymphohistiocytosis
     Dosage: 5 MILLIGRAM/SQ. METER, QD (DOSE DECREASED)
     Route: 065
  6. EMAPALUMAB [Suspect]
     Active Substance: EMAPALUMAB
     Indication: Epstein-Barr virus infection
     Dosage: 2 MILLIGRAM/KILOGRAM
     Route: 065
  7. EMAPALUMAB [Suspect]
     Active Substance: EMAPALUMAB
     Indication: Haemophagocytic lymphohistiocytosis
     Dosage: 4 MILLIGRAM/KILOGRAM
     Route: 065
  8. RUXOLITINIB [Suspect]
     Active Substance: RUXOLITINIB
     Indication: Epstein-Barr virus infection
     Dosage: 10 MILLIGRAM, BID
     Route: 048
  9. RUXOLITINIB [Suspect]
     Active Substance: RUXOLITINIB
     Indication: Haemophagocytic lymphohistiocytosis
     Dosage: 5 MILLIGRAM, BID
     Route: 065
  10. RUXOLITINIB [Suspect]
     Active Substance: RUXOLITINIB
     Indication: Cytokine storm
  11. CEFTRIAXONE [Concomitant]
     Active Substance: CEFTRIAXONE\CEFTRIAXONE SODIUM
     Indication: Infectious mononucleosis
     Dosage: UNK
     Route: 065
  12. MEROPENEM [Concomitant]
     Active Substance: MEROPENEM
     Indication: Anti-infective therapy
     Dosage: UNK
     Route: 065
  13. NOREPINEPHRINE [Concomitant]
     Active Substance: NOREPINEPHRINE\NOREPINEPHRINE BITARTRATE
     Indication: Blood pressure decreased
     Dosage: UNK
     Route: 065

REACTIONS (8)
  - Multiple organ dysfunction syndrome [Recovered/Resolved]
  - Cardiac failure [Recovered/Resolved]
  - Infection [Recovered/Resolved]
  - Aspergillus infection [Recovered/Resolved]
  - Acinetobacter infection [Recovered/Resolved]
  - Tracheobronchitis [Recovered/Resolved]
  - Sepsis [Recovered/Resolved]
  - Off label use [Unknown]
